FAERS Safety Report 6279517-3 (Version None)
Quarter: 2009Q3

REPORT INFORMATION
  Report Type: 
  Country: None (occurrence: None)
  Receive Date: 20090721
  Receipt Date: 20090714
  Transmission Date: 20100115
  Serious: Yes (Hospitalization, Other)
  Sender: FDA-Public Use
  Company Number: GXKR2009DE07294

PATIENT
  Age: 40 Year
  Sex: Female

DRUGS (3)
  1. METFORMIN             (METFORMIN) 500MG [Suspect]
     Indication: GESTATIONAL DIABETES
     Dosage: 500 MG, ORAL
     Route: 048
  2. INSULIN (INSULIN) [Concomitant]
  3. FRAGMIN [Concomitant]

REACTIONS (3)
  - CAESAREAN SECTION [None]
  - DRUG EXPOSURE DURING PREGNANCY [None]
  - PREMATURE LABOUR [None]
